FAERS Safety Report 9856646 (Version 1)
Quarter: 2014Q1

REPORT INFORMATION
  Report Type: Report from Study
  Country: US (occurrence: US)
  Receive Date: 20140130
  Receipt Date: 20140130
  Transmission Date: 20141002
  Serious: Yes (Hospitalization)
  Sender: FDA-Public Use
  Company Number: US-GLAXOSMITHKLINE-A0921340C

PATIENT
  Age: 52 Year
  Sex: Female
  Weight: 48.5 kg

DRUGS (2)
  1. GSK2118436 [Suspect]
     Indication: METASTATIC MALIGNANT MELANOMA
     Dosage: 75MG TWICE PER DAY
     Route: 048
     Dates: start: 20110223
  2. GSK1120212 [Suspect]
     Indication: METASTATIC MALIGNANT MELANOMA
     Dosage: 1MG PER DAY
     Route: 048
     Dates: start: 20110223

REACTIONS (3)
  - Hepatic enzyme increased [Recovered/Resolved]
  - Leukopenia [Recovered/Resolved]
  - Febrile neutropenia [Recovered/Resolved]
